FAERS Safety Report 9216352 (Version 1)
Quarter: 2013Q2

REPORT INFORMATION
  Report Type: Spontaneous
  Country: US (occurrence: US)
  Receive Date: 20130408
  Receipt Date: 20130408
  Transmission Date: 20140414
  Serious: Yes (Hospitalization)
  Sender: FDA-Public Use
  Company Number: PHEH2013US007768

PATIENT
  Sex: Female

DRUGS (2)
  1. VIVELLE DOT [Suspect]
     Dosage: 1 MG, QW2
     Route: 062
  2. CETIRIZINE HYDROCHLORIDE [Concomitant]
     Dosage: UNK UKN, UNK

REACTIONS (6)
  - Malaise [Unknown]
  - Abnormal behaviour [Unknown]
  - Emotional disorder [Unknown]
  - Sleep disorder [Unknown]
  - Eating disorder [Unknown]
  - Hot flush [Unknown]
